FAERS Safety Report 16046448 (Version 1)
Quarter: 2019Q1

REPORT INFORMATION
  Report Type: Spontaneous
  Country: US (occurrence: US)
  Receive Date: 20190307
  Receipt Date: 20190307
  Transmission Date: 20190418
  Serious: Yes (Other)
  Sender: FDA-Public Use
  Company Number: PHHY2019US049523

PATIENT

DRUGS (4)
  1. DABRAFENIB [Suspect]
     Active Substance: DABRAFENIB
     Indication: THYROID CANCER
     Dosage: 150 MG, BID
     Route: 065
  2. LAPATINIB [Suspect]
     Active Substance: LAPATINIB
     Dosage: 1250 MG, QD
     Route: 065
  3. LAPATINIB [Suspect]
     Active Substance: LAPATINIB
     Dosage: 1500 MG, QD
     Route: 065
  4. LAPATINIB [Suspect]
     Active Substance: LAPATINIB
     Indication: THYROID CANCER
     Dosage: 750 MG, QD
     Route: 065

REACTIONS (2)
  - Uveitis [Unknown]
  - Product use in unapproved indication [Unknown]
